FAERS Safety Report 23522719 (Version 3)
Quarter: 2024Q2

REPORT INFORMATION
  Report Type: Spontaneous
  Country: JP (occurrence: None)
  Receive Date: 20240214
  Receipt Date: 20240606
  Transmission Date: 20240716
  Serious: Yes (Hospitalization)
  Sender: FDA-Public Use
  Company Number: 2024A037152

PATIENT
  Age: 19 Year
  Sex: Male

DRUGS (11)
  1. KOSELUGO [Suspect]
     Active Substance: SELUMETINIB
     Indication: Neurofibromatosis
     Dosage: GENERALLY ON EMPTY STOMACH
     Route: 048
     Dates: start: 20230222, end: 20230712
  2. KOSELUGO [Suspect]
     Active Substance: SELUMETINIB
     Indication: Neurofibroma
     Dosage: GENERALLY ON EMPTY STOMACH
     Route: 048
     Dates: start: 20230222, end: 20230712
  3. KOSELUGO [Suspect]
     Active Substance: SELUMETINIB
     Indication: Neurofibromatosis
     Dosage: GENERALLY ON EMPTY STOMACH
     Route: 048
     Dates: start: 20231108
  4. KOSELUGO [Suspect]
     Active Substance: SELUMETINIB
     Indication: Neurofibroma
     Dosage: GENERALLY ON EMPTY STOMACH
     Route: 048
     Dates: start: 20231108
  5. MONTELUKAST [Concomitant]
     Active Substance: MONTELUKAST SODIUM
     Indication: Asthma
  6. BILASTINE [Concomitant]
     Active Substance: BILASTINE
     Indication: Dermatitis atopic
  7. DESLORATADINE [Concomitant]
     Active Substance: DESLORATADINE
     Indication: Dermatitis atopic
  8. DAYVIGO [Concomitant]
     Active Substance: LEMBOREXANT
  9. OLANZAPINE [Concomitant]
     Active Substance: OLANZAPINE
  10. CLONAZEPAM [Concomitant]
     Active Substance: CLONAZEPAM
  11. PULMICORT TURBUHALER [Concomitant]
     Active Substance: BUDESONIDE
     Indication: Asthma
     Dosage: DOSE UNKNOWN
     Route: 055

REACTIONS (3)
  - Inguinal hernia [Recovered/Resolved]
  - Platelet count decreased [Recovered/Resolved]
  - Anaemia [Recovered/Resolved]

NARRATIVE: CASE EVENT DATE: 20230712
